FAERS Safety Report 24996675 (Version 4)
Quarter: 2025Q2

REPORT INFORMATION
  Report Type: Spontaneous
  Country: CO (occurrence: CO)
  Receive Date: 20250221
  Receipt Date: 20250421
  Transmission Date: 20250716
  Serious: No
  Sender: PFIZER
  Company Number: CO-PFIZER INC-PV202500019198

PATIENT
  Sex: Male

DRUGS (1)
  1. GENOTROPIN [Suspect]
     Active Substance: SOMATROPIN
     Dosage: 1.6 MG, DAILY
     Route: 058

REACTIONS (4)
  - Device use issue [Unknown]
  - Device breakage [Unknown]
  - Device failure [Unknown]
  - Device information output issue [Unknown]
